FAERS Safety Report 15587992 (Version 1)
Quarter: 2018Q4

REPORT INFORMATION
  Report Type: Report from Study
  Country: US (occurrence: US)
  Receive Date: 20181105
  Receipt Date: 20181105
  Transmission Date: 20190205
  Serious: Yes (Other)
  Sender: FDA-Public Use
  Company Number: US-ACTELION-A-US2018-181233

PATIENT
  Age: 69 Year
  Sex: Female

DRUGS (14)
  1. AMITRIPTYLIN [Concomitant]
     Active Substance: AMITRIPTYLINE
  2. SILDENAFIL. [Concomitant]
     Active Substance: SILDENAFIL
  3. TRACLEER [Suspect]
     Active Substance: BOSENTAN
     Indication: PULMONARY ARTERIAL HYPERTENSION
     Dosage: 125 MG, BID
     Route: 048
     Dates: start: 20180209
  4. IRON [Concomitant]
     Active Substance: IRON
  5. ALLOPURINOL. [Concomitant]
     Active Substance: ALLOPURINOL
  6. PREDNISONE. [Concomitant]
     Active Substance: PREDNISONE
  7. PROMETHAZINE [Concomitant]
     Active Substance: PROMETHAZINE\PROMETHAZINE HYDROCHLORIDE
  8. RANEXA [Concomitant]
     Active Substance: RANOLAZINE
  9. OXYCODONE [Concomitant]
     Active Substance: OXYCODONE
  10. ASPIRIN. [Concomitant]
     Active Substance: ASPIRIN
  11. ELIQUIS [Concomitant]
     Active Substance: APIXABAN
  12. LEVOTHYROXIN [Concomitant]
     Active Substance: LEVOTHYROXINE
  13. WELCHOL [Concomitant]
     Active Substance: COLESEVELAM HYDROCHLORIDE
  14. PENTOXIFYLLIN [Concomitant]
     Active Substance: PENTOXIFYLLINE

REACTIONS (2)
  - Limb operation [Not Recovered/Not Resolved]
  - Staphylococcal infection [Not Recovered/Not Resolved]
